FAERS Safety Report 20557415 (Version 2)
Quarter: 2022Q1

REPORT INFORMATION
  Report Type: Spontaneous
  Country: US (occurrence: US)
  Receive Date: 20220307
  Receipt Date: 20220321
  Transmission Date: 20220424
  Serious: Yes (Life-Threatening, Hospitalization, Other)
  Sender: FDA-Public Use
  Company Number: US-drreddys-SPO/USA/22/0147322

PATIENT
  Age: 43 Year
  Sex: Male

DRUGS (3)
  1. BUPRENORPHINE\NALOXONE [Suspect]
     Active Substance: BUPRENORPHINE\NALOXONE
     Indication: Product used for unknown indication
  2. LAMOTRIGINE [Concomitant]
     Active Substance: LAMOTRIGINE
     Indication: Bipolar disorder
  3. DULOXETINE [Concomitant]
     Active Substance: DULOXETINE
     Indication: Bipolar disorder

REACTIONS (1)
  - Serotonin syndrome [Recovered/Resolved]
